FAERS Safety Report 5289435-5 (Version None)
Quarter: 2007Q2

REPORT INFORMATION
  Report Type: 
  Country: None (occurrence: None)
  Receive Date: 20070406
  Receipt Date: 20070328
  Transmission Date: 20071010
  Serious: Yes (Other)
  Sender: FDA-Public Use
  Company Number: PHBS2007BR01331

PATIENT
  Sex: Female
  Weight: 50 kg

DRUGS (6)
  1. FEMARA [Suspect]
     Indication: BREAST CANCER
     Dosage: 2.5 MG, QD
     Route: 048
  2. RIVOTRIL [Concomitant]
     Dosage: 2 MG, QD
     Route: 048
  3. CARDIZEM [Concomitant]
     Dosage: 120 MG, QD
     Route: 048
  4. OMEPRAZOLE [Concomitant]
     Dosage: 1 DF, QD
     Route: 048
  5. METAMUCIL [Concomitant]
     Route: 048
  6. LOVASTATIN [Concomitant]
     Dosage: 100 MG, QD
     Route: 048

REACTIONS (6)
  - CONSTIPATION [None]
  - DERMAL CYST [None]
  - MASS [None]
  - MUSCLE FATIGUE [None]
  - RECTAL HAEMORRHAGE [None]
  - VARICOSE VEIN [None]
